FAERS Safety Report 4460192-5 (Version None)
Quarter: 2004Q3

REPORT INFORMATION
  Report Type: 
  Country: None (occurrence: None)
  Receive Date: 20040928
  Receipt Date: 20040121
  Transmission Date: 20050211
  Serious: No
  Sender: FDA-Public Use
  Company Number: US-GLAXOSMITHKLINE-A0494485A

PATIENT
  Sex: Female

DRUGS (2)
  1. SEREVENT [Suspect]
     Indication: ASTHMA
     Dosage: 1PUFF PER DAY
     Route: 055
     Dates: start: 20031223, end: 20040121
  2. FLOVENT [Concomitant]

REACTIONS (2)
  - DYSPNOEA [None]
  - HOARSENESS [None]
